FAERS Safety Report 13346994 (Version 1)
Quarter: 2017Q1

REPORT INFORMATION
  Report Type: Spontaneous
  Country: US (occurrence: US)
  Receive Date: 20170317
  Receipt Date: 20170317
  Transmission Date: 20170428
  Serious: Yes (Death)
  Sender: FDA-Public Use
  Company Number: US-LUNDBECK-DKLU2027856

PATIENT
  Age: 81 Year
  Sex: Male

DRUGS (4)
  1. NORTHERA [Suspect]
     Active Substance: DROXIDOPA
     Indication: ORTHOSTATIC HYPOTENSION
     Dosage: GIVE WITH 300 MG TO TOTAL 400 MG TID
     Route: 048
     Dates: start: 20161013, end: 20170304
  2. NORTHERA [Suspect]
     Active Substance: DROXIDOPA
     Indication: AUTONOMIC NEUROPATHY
     Dosage: TAKE WITH 300 MG CAPSULE TO TOTAL 400 MG TID
     Route: 065
     Dates: start: 20161022, end: 201702
  3. NORTHERA [Suspect]
     Active Substance: DROXIDOPA
     Indication: SYNCOPE
     Dosage: GIVE WITH 100 MG TO TOTAL 400 MG TID
     Route: 048
     Dates: start: 20161013, end: 20170304
  4. NORTHERA [Suspect]
     Active Substance: DROXIDOPA
     Dosage: TAKE WITH 100 MG CAPSULE TO TOTAL 400 MG TID
     Route: 065
     Dates: start: 20161022, end: 201702

REACTIONS (1)
  - Death [Fatal]

NARRATIVE: CASE EVENT DATE: 20170304
